FAERS Safety Report 4757155-9 (Version None)
Quarter: 2005Q3

REPORT INFORMATION
  Report Type: 
  Country: None (occurrence: None)
  Receive Date: 20050829
  Receipt Date: 20050815
  Transmission Date: 20060218
  Serious: Yes (Other)
  Sender: FDA-Public Use
  Company Number: 215769

PATIENT
  Age: 67 Year
  Sex: Female

DRUGS (16)
  1. RITUXAN [Suspect]
     Indication: NON-HODGKIN'S LYMPHOMA
     Dosage: 550 MG, INTRAVENOUS
     Route: 042
     Dates: start: 20050524, end: 20050524
  2. RITUXAN [Suspect]
     Indication: NON-HODGKIN'S LYMPHOMA
     Dosage: 550 MG, INTRAVENOUS
     Route: 042
     Dates: start: 20050614, end: 20050614
  3. CYCLOPHOSPHAMIDE [Concomitant]
  4. DOXORUBICIN HYDROCHLORIDE [Concomitant]
  5. ONCOVIN [Concomitant]
  6. PREDISOLONE [Concomitant]
  7. MUCOSTA (REBAMIPIDE) [Concomitant]
  8. MAGNESII OXIDUM (MAGNESIUM OXIDE) [Concomitant]
  9. DEPAS (ETIZOLAM) [Concomitant]
  10. FAMOTIDINE [Concomitant]
  11. ALLOPURINOL [Concomitant]
  12. DOGMATYL (SULPIRIDE) [Concomitant]
  13. DOMPERIDONE (DOMPERIDONE) [Concomitant]
  14. DIFLUCAN [Concomitant]
  15. SULFAMETHOXAZOLE + TRIMETHOPRIM [Concomitant]
  16. TECIPUL (SETIPTILINE MALEATE) [Concomitant]

REACTIONS (5)
  - BACK PAIN [None]
  - BLOOD GLUCOSE INCREASED [None]
  - GLYCOGEN STORAGE DISORDER [None]
  - HEPATOMEGALY [None]
  - LIVER DISORDER [None]
